FAERS Safety Report 11049360 (Version 1)
Quarter: 2015Q2

REPORT INFORMATION
  Report Type: Spontaneous
  Country: US (occurrence: US)
  Receive Date: 20150420
  Receipt Date: 20150420
  Transmission Date: 20150821
  Serious: No
  Sender: FDA-Public Use
  Company Number: US-009507513-1504USA018422

PATIENT

DRUGS (2)
  1. INTEGRILIN [Suspect]
     Active Substance: EPTIFIBATIDE
     Dosage: 0.5 MICROGRAM PER KILOGRAN PER MINUTE
     Route: 042
  2. INTEGRILIN [Suspect]
     Active Substance: EPTIFIBATIDE
     Indication: ISCHAEMIC STROKE
     Dosage: 135 MICROGRAM PER KILOGRAM, SINGLE DOSE BOLUS
     Route: 042

REACTIONS (1)
  - Haemarthrosis [Unknown]
